FAERS Safety Report 8606741 (Version 3)
Quarter: 2014Q1

REPORT INFORMATION
  Report Type: Spontaneous
  Country: US (occurrence: US)
  Receive Date: 20120611
  Receipt Date: 20140116
  Transmission Date: 20141002
  Serious: No
  Sender: FDA-Public Use
  Company Number: US-ASTRAZENECA-2012SE35308

PATIENT
  Age: 568 Month
  Sex: Female

DRUGS (18)
  1. NEXIUM [Suspect]
     Indication: GASTROOESOPHAGEAL REFLUX DISEASE
     Route: 048
     Dates: start: 2008, end: 2011
  2. NEXIUM [Suspect]
     Indication: GASTROOESOPHAGEAL REFLUX DISEASE
     Route: 048
     Dates: start: 20090126
  3. PREVACID [Concomitant]
     Dates: start: 200809
  4. ROLAIDS OTC [Concomitant]
     Dates: start: 2007, end: 2008
  5. MILK OF MAGNESIA [Concomitant]
     Dates: start: 2007, end: 2008
  6. ALKA SELTZER OTC [Concomitant]
     Dates: start: 2007, end: 2008
  7. TUMS OTC [Concomitant]
     Dates: start: 2007, end: 2008
  8. FOLIC ACID [Concomitant]
     Dates: start: 20090212
  9. FERROUS SULPHATE [Concomitant]
     Dates: start: 20081211
  10. HYDROCODONE/APAP [Concomitant]
     Dosage: 5-500 MG
     Dates: start: 20081230
  11. DIOVAN [Concomitant]
     Dates: start: 20090112
  12. PHENAZOPYRIDINE HCL [Concomitant]
     Dates: start: 20090122
  13. CIPROFLOXACIN [Concomitant]
     Dates: start: 20090122
  14. MELOXICAM [Concomitant]
     Dates: start: 20100629
  15. GABAPENTIN [Concomitant]
     Dates: start: 20100629
  16. CLONIDINE HCL [Concomitant]
     Dates: start: 20100630
  17. LISINOPRIL [Concomitant]
     Dates: start: 20101101
  18. METOPROLOL TARTRATE [Concomitant]
     Dates: start: 20101101

REACTIONS (5)
  - Wrist fracture [Unknown]
  - Osteoporosis [Unknown]
  - Carpal tunnel syndrome [Unknown]
  - Multiple fractures [Unknown]
  - Glaucoma [Unknown]
